FAERS Safety Report 7062875-X (Version None)
Quarter: 2010Q4

REPORT INFORMATION
  Report Type: 
  Country: None (occurrence: None)
  Receive Date: 20101026
  Receipt Date: 20100208
  Transmission Date: 20110411
  Serious: No
  Sender: FDA-Public Use
  Company Number: US-PFIZER INC-2010018321

PATIENT
  Sex: Male

DRUGS (1)
  1. LIPITOR [Suspect]
     Dosage: 10 MG, 1X/DAY

REACTIONS (4)
  - ARTHRALGIA [None]
  - COUGH [None]
  - FATIGUE [None]
  - MUSCULOSKELETAL DISCOMFORT [None]
